FAERS Safety Report 23628985 (Version 2)
Quarter: 2024Q3

REPORT INFORMATION
  Report Type: Spontaneous
  Country: US (occurrence: US)
  Receive Date: 20240313
  Receipt Date: 20240805
  Transmission Date: 20241016
  Serious: No
  Sender: BRISTOL MYERS SQUIBB
  Company Number: US-BRISTOL-MYERS SQUIBB COMPANY-2024-040599

PATIENT
  Age: 26 Year
  Sex: Female

DRUGS (3)
  1. SPRYCEL [Suspect]
     Active Substance: DASATINIB
     Indication: Chronic myeloid leukaemia
     Route: 048
     Dates: start: 202401
  2. SPRYCEL [Suspect]
     Active Substance: DASATINIB
  3. SPRYCEL [Suspect]
     Active Substance: DASATINIB
     Route: 048
     Dates: start: 202401

REACTIONS (8)
  - Fatigue [Unknown]
  - Nausea [Unknown]
  - Vomiting [Unknown]
  - Injection site infection [Unknown]
  - Off label use [Unknown]
  - Dizziness [Unknown]
  - Diarrhoea [Unknown]
  - Bone pain [Unknown]

NARRATIVE: CASE EVENT DATE: 20240311
